FAERS Safety Report 8363569-0 (Version None)
Quarter: 2012Q2

REPORT INFORMATION
  Report Type: 
  Country: None (occurrence: None)
  Receive Date: 20120514
  Receipt Date: 20120427
  Transmission Date: 20120825
  Serious: Yes (Other)
  Sender: FDA-Public Use
  Company Number: 2012US-56142

PATIENT
  Age: 53 Year
  Sex: Female

DRUGS (1)
  1. NITROFURANTOIN [Suspect]
     Indication: URINARY TRACT INFECTION

REACTIONS (7)
  - MALAISE [None]
  - PAIN IN EXTREMITY [None]
  - PERIPHERAL NERVE INJURY [None]
  - HEADACHE [None]
  - WEIGHT DECREASED [None]
  - PELVIC PAIN [None]
  - ARTHRALGIA [None]
